FAERS Safety Report 5839837-0 (Version None)
Quarter: 2008Q3

REPORT INFORMATION
  Report Type: 
  Country: None (occurrence: None)
  Receive Date: 20080807
  Receipt Date: 20080730
  Transmission Date: 20090109
  Serious: Yes (Hospitalization)
  Sender: FDA-Public Use
  Company Number: GXBR2008US01568

PATIENT
  Age: 78 Year
  Sex: Female
  Weight: 86.2 kg

DRUGS (12)
  1. AMIODARONE HCL [Suspect]
     Indication: ATRIAL FIBRILLATION
     Dosage: 100 MG, QD, ORAL, 200MG BID2SDO, ORAL
     Route: 048
     Dates: start: 20080323, end: 20080712
  2. AMIODARONE HCL [Suspect]
     Indication: ATRIAL FIBRILLATION
     Dosage: 100 MG, QD, ORAL, 200MG BID2SDO, ORAL
     Route: 048
     Dates: start: 20080715
  3. PRILOSEC [Concomitant]
  4. LEVOTHYROXINE SODIUM [Concomitant]
  5. FUROSEMIDE [Concomitant]
  6. POTASSIUM (POTASSIUM) [Concomitant]
  7. CELEXA [Concomitant]
  8. GABAPENTIN [Concomitant]
  9. METOPROLOL TARTRATE [Concomitant]
  10. WARFARIN SODIUM [Concomitant]
  11. NOVOLOG [Concomitant]
  12. LANTUS [Concomitant]

REACTIONS (25)
  - ALOPECIA [None]
  - ANAEMIA [None]
  - ASTHENIA [None]
  - ATRIAL FIBRILLATION [None]
  - BALANCE DISORDER [None]
  - BLOOD PRESSURE INCREASED [None]
  - BLOOD THYROID STIMULATING HORMONE INCREASED [None]
  - COLITIS ISCHAEMIC [None]
  - CONFUSIONAL STATE [None]
  - DEAFNESS [None]
  - DYSURIA [None]
  - FALL [None]
  - FATIGUE [None]
  - GAIT DISTURBANCE [None]
  - HEART RATE DECREASED [None]
  - INTERNATIONAL NORMALISED RATIO INCREASED [None]
  - LIVER DISORDER [None]
  - MUSCULAR WEAKNESS [None]
  - OVERDOSE [None]
  - RENAL IMPAIRMENT [None]
  - SKIN DISCOLOURATION [None]
  - THERAPEUTIC AGENT TOXICITY [None]
  - WALKING AID USER [None]
  - WEIGHT DECREASED [None]
  - WEIGHT INCREASED [None]
